FAERS Safety Report 7307842-3 (Version None)
Quarter: 2011Q1

REPORT INFORMATION
  Report Type: 
  Country: None (occurrence: None)
  Receive Date: 20110223
  Receipt Date: 20110214
  Transmission Date: 20110831
  Serious: Yes (Hospitalization, Other)
  Sender: FDA-Public Use
  Company Number: PK-NOVOPROD-323281

PATIENT
  Age: 35 Year
  Sex: Female
  Weight: 90 kg

DRUGS (1)
  1. NOVOSEVEN [Suspect]
     Indication: HYPOVOLAEMIA
     Dosage: 1.2 MG, QD

REACTIONS (1)
  - INTRA-UTERINE DEATH [None]
